FAERS Safety Report 5958278-9 (Version None)
Quarter: 2008Q4

REPORT INFORMATION
  Report Type: 
  Country: None (occurrence: None)
  Receive Date: 20081119
  Receipt Date: 20081112
  Transmission Date: 20090506
  Serious: Yes (Hospitalization, Other)
  Sender: FDA-Public Use
  Company Number: US-ELI_LILLY_AND_COMPANY-US200811002891

PATIENT
  Sex: Female

DRUGS (6)
  1. HUMALOG [Suspect]
     Indication: DIABETES MELLITUS
     Dosage: UNK, UNK
     Dates: start: 20060101
  2. LIPITOR [Concomitant]
  3. LASIX [Concomitant]
     Dosage: 40 MG, UNK
  4. AVANDIA [Concomitant]
  5. METFORMIN HCL [Concomitant]
  6. CORTICOSTEROIDS [Concomitant]

REACTIONS (14)
  - BLOOD GLUCOSE FLUCTUATION [None]
  - EPISTAXIS [None]
  - FACIAL BONES FRACTURE [None]
  - FALL [None]
  - HAEMORRHAGE [None]
  - HEAD INJURY [None]
  - KIDNEY INFECTION [None]
  - LOSS OF CONSCIOUSNESS [None]
  - MENINGIOMA [None]
  - PULMONARY HYPERTENSION [None]
  - TRAUMATIC HAEMATOMA [None]
  - UPPER LIMB FRACTURE [None]
  - WEIGHT DECREASED [None]
  - WEIGHT INCREASED [None]
